FAERS Safety Report 7948681-X (Version None)
Quarter: 2011Q4

REPORT INFORMATION
  Report Type: 
  Country: None (occurrence: None)
  Receive Date: 20111130
  Receipt Date: 20111122
  Transmission Date: 20120403
  Serious: Yes (Life-Threatening, Hospitalization)
  Sender: FDA-Public Use
  Company Number: US-SANOFI-AVENTIS-2011SA076847

PATIENT
  Age: 63 Year
  Sex: Female

DRUGS (7)
  1. GLUCOTROL [Concomitant]
     Indication: DIABETES MELLITUS
  2. PREDNISONE TAB [Concomitant]
     Dosage: TAPERING DOSE
  3. HUMULIN R [Concomitant]
     Indication: DIABETES MELLITUS
  4. TRASTUZUMAB [Suspect]
     Indication: BREAST CANCER
     Route: 065
  5. DOCETAXEL [Suspect]
     Indication: BREAST CANCER
     Route: 042
  6. PYRIDOXINE HCL [Suspect]
     Indication: BREAST CANCER
     Route: 048
  7. DOXORUBICIN HCL [Suspect]
     Indication: BREAST CANCER
     Route: 065

REACTIONS (2)
  - HYPERGLYCAEMIA [None]
  - INFECTION [None]
